FAERS Safety Report 4716414-6 (Version None)
Quarter: 2005Q3

REPORT INFORMATION
  Report Type: 
  Country: None (occurrence: None)
  Receive Date: 20050719
  Receipt Date: 20050711
  Transmission Date: 20060218
  Serious: Yes (Other)
  Sender: FDA-Public Use
  Company Number: MX-BOEHRINGER INGELHEIM PHARMACEUTICALS, INC.-2005-BP-11660MX

PATIENT
  Age: 61 Year
  Sex: Male

DRUGS (2)
  1. SECOTEX CAPSULES 0.4MG [Suspect]
     Indication: BENIGN PROSTATIC HYPERPLASIA
     Route: 048
     Dates: start: 20041124
  2. SECOTEX CAPSULES 0.4MG [Suspect]
     Indication: URINARY RETENTION

REACTIONS (1)
  - PROSTATE CANCER [None]
